FAERS Safety Report 5032949-3 (Version None)
Quarter: 2006Q2

REPORT INFORMATION
  Report Type: 
  Country: None (occurrence: None)
  Receive Date: 20060622
  Receipt Date: 20060519
  Transmission Date: 20061013
  Serious: Yes (Other)
  Sender: FDA-Public Use
  Company Number: JP-SANOFI-SYNTHELABO-A01200603777

PATIENT
  Age: 68 Year
  Sex: Female
  Weight: 47 kg

DRUGS (8)
  1. DROLEPTAN [Concomitant]
     Indication: DRUG USE FOR UNKNOWN INDICATION
     Route: 041
     Dates: start: 20060512, end: 20060512
  2. FENTANEST [Concomitant]
     Indication: DRUG USE FOR UNKNOWN INDICATION
     Route: 041
     Dates: start: 20060512, end: 20060512
  3. ANAPEINE [Concomitant]
     Indication: DRUG USE FOR UNKNOWN INDICATION
     Route: 041
     Dates: start: 20060512, end: 20060512
  4. FERROMIA [Concomitant]
     Indication: ANAEMIA
     Dosage: 50 MG
     Route: 048
     Dates: start: 20060513
  5. BENET [Concomitant]
     Indication: OSTEOPOROSIS
     Dosage: 2.5 MG
     Route: 048
     Dates: start: 20060605
  6. DEPAS [Concomitant]
     Indication: INSOMNIA
     Route: 048
     Dates: start: 20060519
  7. GASTER D [Concomitant]
     Indication: GASTRIC ULCER
     Route: 048
     Dates: start: 20060529
  8. MYSLEE [Suspect]
     Indication: DRUG USE FOR UNKNOWN INDICATION
     Route: 048
     Dates: start: 20060511, end: 20060513

REACTIONS (5)
  - AMNESIA [None]
  - ANAEMIA [None]
  - DELIRIUM [None]
  - FALL [None]
  - RESTLESSNESS [None]
